FAERS Safety Report 15965377 (Version 2)
Quarter: 2019Q1

REPORT INFORMATION
  Report Type: Spontaneous
  Country: FR (occurrence: FR)
  Receive Date: 20190215
  Receipt Date: 20190219
  Transmission Date: 20190418
  Serious: Yes (Hospitalization)
  Sender: FDA-Public Use
  Company Number: FR-TEVA-2019-FR-1010847

PATIENT
  Age: 89 Year
  Sex: Female

DRUGS (11)
  1. PARACETAMOL [Concomitant]
     Active Substance: ACETAMINOPHEN
     Route: 048
  2. VANCOMYCINE [Suspect]
     Active Substance: VANCOMYCIN
     Indication: DERMO-HYPODERMITIS
     Dosage: 1.5 GRAM DAILY;
     Route: 042
     Dates: start: 20181024, end: 20181029
  3. TAZOBACTAM [Suspect]
     Active Substance: TAZOBACTAM
     Indication: DERMO-HYPODERMITIS
     Dosage: 3 DOSAGE FORMS DAILY;
     Route: 042
     Dates: start: 20181024, end: 20181029
  4. CETIRIZINE (DICHLORHYDRATE DE) [Concomitant]
     Active Substance: CETIRIZINE HYDROCHLORIDE
     Route: 048
  5. ELIQUIS [Concomitant]
     Active Substance: APIXABAN
     Route: 048
  6. FUROSEMIDE. [Suspect]
     Active Substance: FUROSEMIDE
     Indication: PRODUCT USED FOR UNKNOWN INDICATION
     Dosage: 60 MILLIGRAM DAILY;
     Route: 048
  7. PIPERACILLINE SODIQUE [Suspect]
     Active Substance: PIPERACILLIN
     Indication: DERMO-HYPODERMITIS
     Dosage: 3 DOSAGE FORMS DAILY;
     Route: 042
     Dates: start: 20181024, end: 20181029
  8. LANSOPRAZOLE. [Concomitant]
     Active Substance: LANSOPRAZOLE
     Route: 048
  9. LEVOTHYROX 75 MICROGRAMMES, COMPRIM? S?CABLE [Concomitant]
     Active Substance: LEVOTHYROXINE SODIUM
     Route: 048
  10. HYDROCORTISONE. [Concomitant]
     Active Substance: HYDROCORTISONE
     Route: 048
  11. ZYMAD [Concomitant]
     Active Substance: CHOLECALCIFEROL
     Route: 048

REACTIONS (2)
  - Hypoacusis [Not Recovered/Not Resolved]
  - Ototoxicity [Not Recovered/Not Resolved]

NARRATIVE: CASE EVENT DATE: 20181101
